FAERS Safety Report 8026113-3 (Version None)
Quarter: 2012Q1

REPORT INFORMATION
  Report Type: 
  Country: None (occurrence: None)
  Receive Date: 20120105
  Receipt Date: 20110614
  Transmission Date: 20120608
  Serious: No
  Sender: FDA-Public Use
  Company Number: US-ABBOTT-11P-163-0732782-00

PATIENT
  Age: 50 Year
  Sex: Male
  Weight: 104.42 kg

DRUGS (1)
  1. SYNTHROID [Suspect]
     Indication: THYROID NEOPLASM
     Dates: start: 19910101

REACTIONS (5)
  - HOT FLUSH [None]
  - ABDOMINAL PAIN UPPER [None]
  - DIARRHOEA [None]
  - NAUSEA [None]
  - PALPITATIONS [None]
